FAERS Safety Report 10570895 (Version 6)
Quarter: 2016Q1

REPORT INFORMATION
  Report Type: Spontaneous
  Country: CA (occurrence: CA)
  Receive Date: 20141107
  Receipt Date: 20160103
  Transmission Date: 20160525
  Serious: Yes (Other)
  Sender: FDA-Public Use
  Company Number: CA-GSKJP-KK201310284GSK1550188002

PATIENT
  Age: 39 Year
  Sex: Female
  Weight: 86 kg

DRUGS (18)
  1. SINEMET [Concomitant]
     Active Substance: CARBIDOPA\LEVODOPA
     Indication: PRODUCT USED FOR UNKNOWN INDICATION
     Dosage: 4 MG, 1D
     Route: 048
  2. SYNTHROID [Concomitant]
     Active Substance: LEVOTHYROXINE SODIUM
     Indication: PRODUCT USED FOR UNKNOWN INDICATION
     Dosage: UNK
  3. BENLYSTA [Suspect]
     Active Substance: BELIMUMAB
     Dosage: 720 MG, UNK
     Dates: start: 20121221
  4. BENLYSTA [Suspect]
     Active Substance: BELIMUMAB
     Dosage: 720 MG, UNK
  5. FENTANYL TRANSDERMAL SYSTEM [Concomitant]
     Active Substance: FENTANYL
     Indication: PRODUCT USED FOR UNKNOWN INDICATION
     Dosage: 25 MG EVERY TWO DAYS
  6. BENLYSTA [Suspect]
     Active Substance: BELIMUMAB
     Dosage: UNK
     Route: 042
     Dates: start: 20121221
  7. BENLYSTA [Suspect]
     Active Substance: BELIMUMAB
     Dosage: 750 MG, CYC
     Dates: start: 201212
  8. BENLYSTA [Suspect]
     Active Substance: BELIMUMAB
     Dosage: UNK
     Route: 042
     Dates: start: 20121221
  9. BENLYSTA [Suspect]
     Active Substance: BELIMUMAB
     Dosage: 650 UNK, Q4 WEEKS
     Dates: start: 20121221
  10. BENLYSTA [Suspect]
     Active Substance: BELIMUMAB
     Dosage: UNK
     Dates: start: 20121221
  11. AMITRIPTYLINE [Suspect]
     Active Substance: AMITRIPTYLINE
     Indication: PRODUCT USED FOR UNKNOWN INDICATION
     Dosage: UNK
  12. PREDNISONE. [Concomitant]
     Active Substance: PREDNISONE
     Indication: PRODUCT USED FOR UNKNOWN INDICATION
     Dosage: 15 MG, 1D
     Route: 048
  13. BENLYSTA [Suspect]
     Active Substance: BELIMUMAB
     Dosage: 720 UNK, UNK
  14. GRAVOL [Concomitant]
     Active Substance: DIMENHYDRINATE
     Indication: PRODUCT USED FOR UNKNOWN INDICATION
     Dosage: 50 MG, UNK
     Route: 042
  15. BENLYSTA [Suspect]
     Active Substance: BELIMUMAB
     Indication: SYSTEMIC LUPUS ERYTHEMATOSUS
     Dosage: 860 MG WKS 0, 2, 4 THEN EVERY 4 WEEKS
     Route: 042
     Dates: start: 20121221
  16. BENLYSTA [Suspect]
     Active Substance: BELIMUMAB
     Dosage: 650 MG, UNK
  17. TYLENOL [Concomitant]
     Active Substance: ACETAMINOPHEN
     Indication: PRODUCT USED FOR UNKNOWN INDICATION
     Dosage: 650 MG, UNK
  18. PLAQUENIL [Concomitant]
     Active Substance: HYDROXYCHLOROQUINE SULFATE
     Indication: PRODUCT USED FOR UNKNOWN INDICATION
     Dosage: 400 MG, UNK

REACTIONS (17)
  - Cholecystectomy [Unknown]
  - Migraine [Unknown]
  - Peripheral swelling [Recovered/Resolved]
  - Fibromyalgia [Unknown]
  - Nausea [Not Recovered/Not Resolved]
  - Joint swelling [Recovered/Resolved]
  - Rash [Unknown]
  - Hepatic enzyme increased [Unknown]
  - Gingival bleeding [Not Recovered/Not Resolved]
  - Gingival recession [Unknown]
  - Pyrexia [Unknown]
  - Catheter site discharge [Recovered/Resolved]
  - Sensitivity of teeth [Unknown]
  - Erythema multiforme [Unknown]
  - Pain [Unknown]
  - Cholelithiasis [Unknown]
  - Fatigue [Unknown]

NARRATIVE: CASE EVENT DATE: 20121221
